FAERS Safety Report 25889076 (Version 1)
Quarter: 2025Q4

REPORT INFORMATION
  Report Type: Spontaneous
  Country: EU (occurrence: EU)
  Receive Date: 20251007
  Receipt Date: 20251007
  Transmission Date: 20260118
  Serious: Yes (Hospitalization, Other)
  Sender: CHEPLAPHARM
  Company Number: None

PATIENT
  Age: 71 Year
  Sex: Male
  Weight: 71.099 kg

DRUGS (8)
  1. HYDROXYUREA [Suspect]
     Active Substance: HYDROXYUREA
     Indication: Acute myeloid leukaemia
     Dosage: 11 DOSAGE FORM ON 11-12-MAY, 3 DF ON MAY 13-14
     Route: 048
     Dates: start: 20250511, end: 20250514
  2. VENETOCLAX [Suspect]
     Active Substance: VENETOCLAX
     Dosage: DAILY DOSE: 100 MILLIGRAM
     Route: 048
     Dates: start: 20250515, end: 20250604
  3. CYTARABINE [Suspect]
     Active Substance: CYTARABINE
     Route: 042
     Dates: start: 20250514, end: 20250514
  4. AZACITIDINE [Suspect]
     Active Substance: AZACITIDINE
     Dosage: DAILY DOSE: 140 MILLIGRAM
     Route: 058
     Dates: start: 20250519, end: 20250525
  5. DEXAMETHASONE SODIUM PHOSPHATE [Concomitant]
     Active Substance: DEXAMETHASONE SODIUM PHOSPHATE
     Dates: start: 20250511, end: 20250513
  6. POSACONAZOLE [Concomitant]
     Active Substance: POSACONAZOLE
     Dates: start: 20250511
  7. VALACYCLOVIR [Concomitant]
     Active Substance: VALACYCLOVIR HYDROCHLORIDE
     Dates: start: 20250511
  8. SERTRALINE [Concomitant]
     Active Substance: SERTRALINE HYDROCHLORIDE
     Dosage: 3-0-0?DAILY DOSE: 150 MILLIGRAM

REACTIONS (4)
  - Bone marrow failure [Recovered/Resolved]
  - Anal abscess [Unknown]
  - Bacteraemia [Unknown]
  - Rash maculo-papular [Unknown]

NARRATIVE: CASE EVENT DATE: 20250513
